FAERS Safety Report 12868264 (Version 2)
Quarter: 2017Q1

REPORT INFORMATION
  Report Type: Report from Study
  Country: US (occurrence: US)
  Receive Date: 20161020
  Receipt Date: 20170124
  Transmission Date: 20170428
  Serious: No
  Sender: FDA-Public Use
  Company Number: US-AMGEN-USASL2016131722

PATIENT
  Age: 58 Year
  Sex: Female

DRUGS (1)
  1. REPATHA [Suspect]
     Active Substance: EVOLOCUMAB
     Indication: PRODUCT USED FOR UNKNOWN INDICATION
     Dosage: 140 MG, TWICE MONTHLY
     Route: 065
     Dates: end: 201511

REACTIONS (6)
  - Skin reaction [Unknown]
  - Skin induration [Unknown]
  - Urticaria [Unknown]
  - Skin mass [Unknown]
  - Arthropod bite [Unknown]
  - Scab [Unknown]
